FAERS Safety Report 8078737-5 (Version None)
Quarter: 2012Q1

REPORT INFORMATION
  Report Type: 
  Country: None (occurrence: None)
  Receive Date: 20120125
  Receipt Date: 20120117
  Transmission Date: 20120608
  Serious: Yes (Death, Other)
  Sender: FDA-Public Use
  Company Number: DSA_48355_2011

PATIENT
  Sex: Male
  Weight: 64.8644 kg

DRUGS (10)
  1. TRAZODONE HCL [Concomitant]
  2. XENAZINE [Suspect]
     Indication: HUNTINGTON'S DISEASE
     Dosage: (12.5 MG QD ORAL), (12. 5MG BID ORAL), (25 MG BID ORAL)
     Route: 048
     Dates: start: 20111130, end: 20111206
  3. XENAZINE [Suspect]
     Indication: HUNTINGTON'S DISEASE
     Dosage: (12.5 MG QD ORAL), (12. 5MG BID ORAL), (25 MG BID ORAL)
     Route: 048
     Dates: start: 20111201, end: 20120107
  4. XENAZINE [Suspect]
     Indication: HUNTINGTON'S DISEASE
     Dosage: (12.5 MG QD ORAL), (12. 5MG BID ORAL), (25 MG BID ORAL)
     Route: 048
     Dates: start: 20111207
  5. HALDOL [Concomitant]
  6. ZYPREXA [Concomitant]
  7. SENNA /00142201/ [Concomitant]
  8. ALLERGY MEDICATION [Concomitant]
  9. LORAZEPAM [Concomitant]
  10. DIAZEPAM [Concomitant]

REACTIONS (4)
  - CONVULSION [None]
  - PAIN IN EXTREMITY [None]
  - SOMNOLENCE [None]
  - CONDITION AGGRAVATED [None]
